FAERS Safety Report 6566133-9 (Version None)
Quarter: 2010Q1

REPORT INFORMATION
  Report Type: 
  Country: None (occurrence: None)
  Receive Date: 20100202
  Receipt Date: 20100125
  Transmission Date: 20100710
  Serious: Yes (Other)
  Sender: FDA-Public Use
  Company Number: US-JNJFOC-20091105761

PATIENT
  Sex: Female
  Weight: 59.42 kg

DRUGS (4)
  1. LEVAQUIN [Suspect]
     Indication: SINUSITIS
     Route: 048
  2. LEVAQUIN [Suspect]
     Indication: BRONCHITIS
     Route: 048
  3. PROAIR HFA [Concomitant]
     Indication: BRONCHITIS
     Route: 065
  4. TUSSIONEX [Concomitant]
     Indication: COUGH
     Route: 048

REACTIONS (4)
  - ARTHRALGIA [None]
  - EPICONDYLITIS [None]
  - MUSCULOSKELETAL STIFFNESS [None]
  - TENDONITIS [None]
